FAERS Safety Report 5028807-0 (Version None)
Quarter: 2006Q2

REPORT INFORMATION
  Report Type: 
  Country: None (occurrence: None)
  Receive Date: 20060501
  Receipt Date: 20060313
  Transmission Date: 20061013
  Serious: No
  Sender: FDA-Public Use
  Company Number: 200612654US

PATIENT
  Age: 64 Year
  Sex: Female

DRUGS (3)
  1. KETEK [Suspect]
     Indication: COUGH
     Dosage: 400 MG QD PO
     Route: 048
     Dates: start: 20060313
  2. GUAIFENESIN [Concomitant]
  3. DEXTROMETHORPHAN HYDROBROMIDE (TUSSIN DM) [Concomitant]

REACTIONS (1)
  - DIARRHOEA [None]
